FAERS Safety Report 26157726 (Version 1)
Quarter: 2025Q4

REPORT INFORMATION
  Report Type: Spontaneous
  Country: US (occurrence: None)
  Receive Date: 20251214
  Receipt Date: 20251214
  Transmission Date: 20260117
  Serious: Yes (Hospitalization)
  Sender: FDA-CTU
  Company Number: None

PATIENT
  Age: 60 Year
  Sex: Female
  Weight: 114.4 kg

DRUGS (8)
  1. CYCLOPHOSPHAMIDE [Suspect]
     Active Substance: CYCLOPHOSPHAMIDE
     Dates: end: 20251114
  2. CYTARABINE [Suspect]
     Active Substance: CYTARABINE
     Dates: end: 20251112
  3. DEXAMETHASONE [Suspect]
     Active Substance: DEXAMETHASONE
     Dates: end: 20251122
  4. DOXORUBICIN HYDROCHLORIDE [Suspect]
     Active Substance: DOXORUBICIN HYDROCHLORIDE
     Dates: end: 20251114
  5. MESNA [Suspect]
     Active Substance: MESNA
     Dates: end: 20251114
  6. METHOTREXATE [Suspect]
     Active Substance: METHOTREXATE
     Dates: end: 20251119
  7. PONATINIB [Suspect]
     Active Substance: PONATINIB
     Dates: end: 20251123
  8. VINCRISTINE SULFATE [Suspect]
     Active Substance: VINCRISTINE SULFATE
     Dates: end: 20251119

REACTIONS (1)
  - Colitis [None]

NARRATIVE: CASE EVENT DATE: 20251124
